FAERS Safety Report 6856565-3 (Version None)
Quarter: 2010Q3

REPORT INFORMATION
  Report Type: 
  Country: None (occurrence: None)
  Receive Date: 20100716
  Receipt Date: 20100716
  Transmission Date: 20110219
  Serious: Yes (Hospitalization)
  Sender: FDA-Public Use
  Company Number: None

PATIENT
  Age: 64 Year
  Sex: Female
  Weight: 53.0709 kg

DRUGS (2)
  1. FOXOMAX 70MG MERCK [Suspect]
     Indication: OSTEOPENIA
     Dosage: 70MG WEEKLY BUCCAL
     Route: 002
     Dates: start: 20040101, end: 20071031
  2. ACTONEL [Suspect]
     Indication: OSTEOPOROSIS
     Dosage: 35 MH WEEKLY BUCCAL
     Route: 002
     Dates: start: 20071101, end: 20091231

REACTIONS (2)
  - FALL [None]
  - FEMUR FRACTURE [None]
